FAERS Safety Report 13737544 (Version 2)
Quarter: 2017Q3

REPORT INFORMATION
  Report Type: Report from Study
  Country: US (occurrence: US)
  Receive Date: 20170710
  Receipt Date: 20170714
  Transmission Date: 20171127
  Serious: Yes (Hospitalization)
  Sender: FDA-Public Use
  Company Number: US-GILEAD-2017-0281446

PATIENT
  Age: 56 Year
  Sex: Male

DRUGS (1)
  1. IDELALISIB [Suspect]
     Active Substance: IDELALISIB
     Indication: MANTLE CELL LYMPHOMA
     Dosage: 150 MG, BID
     Route: 048
     Dates: start: 20170613, end: 20170621

REACTIONS (5)
  - Peripheral swelling [Unknown]
  - Pyrexia [Unknown]
  - Off label use [Recovered/Resolved]
  - Tumour pain [Unknown]
  - Bacterial infection [Unknown]

NARRATIVE: CASE EVENT DATE: 201706
